FAERS Safety Report 4839817-8 (Version None)
Quarter: 2005Q4

REPORT INFORMATION
  Report Type: 
  Country: None (occurrence: None)
  Receive Date: 20051125
  Receipt Date: 20051114
  Transmission Date: 20060501
  Serious: Yes (Disabling)
  Sender: FDA-Public Use
  Company Number: HQWYE268226OCT05

PATIENT
  Sex: Male

DRUGS (1)
  1. CORDARONE [Suspect]
     Indication: VENTRICULAR ARRHYTHMIA
     Dosage: 200 MG TABLET,      ^A FEW YEARS^
     Route: 048
     Dates: end: 20050301

REACTIONS (2)
  - LUMBAR RADICULOPATHY [None]
  - NEUROPATHY PERIPHERAL [None]
